FAERS Safety Report 22860450 (Version 11)
Quarter: 2024Q1

REPORT INFORMATION
  Report Type: Spontaneous
  Country: CA (occurrence: CA)
  Receive Date: 20230824
  Receipt Date: 20240104
  Transmission Date: 20240409
  Serious: Yes (Hospitalization, Other)
  Sender: FDA-Public Use
  Company Number: CA-PFIZER INC-PV202300143906

PATIENT
  Age: 47 Year
  Sex: Female

DRUGS (10)
  1. ABRILADA [Suspect]
     Active Substance: ADALIMUMAB-AFZB
     Indication: Rheumatoid arthritis
     Dosage: 40 MG, EVERY 2 WEEKS
     Route: 058
     Dates: start: 20230804
  2. ABRILADA [Suspect]
     Active Substance: ADALIMUMAB-AFZB
     Dosage: 40 MG, EVERY 2 WEEKS
     Route: 058
     Dates: start: 20230818
  3. ABRILADA [Suspect]
     Active Substance: ADALIMUMAB-AFZB
     Dosage: 40 MG, EVERY 2 WEEKS
     Route: 058
     Dates: start: 20230831, end: 20230831
  4. CELLCEPT [Concomitant]
     Active Substance: MYCOPHENOLATE MOFETIL
     Dosage: 500 MG, 2X/DAY BID
     Route: 048
     Dates: end: 20230907
  5. LEFLUNOMIDE [Concomitant]
     Active Substance: LEFLUNOMIDE
     Dosage: UNK
  6. PREDNISONE [Concomitant]
     Active Substance: PREDNISONE
     Dosage: UNK
  7. RITUXIMAB [Concomitant]
     Active Substance: RITUXIMAB
     Indication: Rheumatoid arthritis
     Dosage: 500 MG, ONCE
     Route: 042
     Dates: start: 20221124
  8. RITUXIMAB [Concomitant]
     Active Substance: RITUXIMAB
     Indication: Episcleritis
     Dosage: 1000 MG, MG FREQUENCY: 6 MONTHS
     Route: 042
     Dates: start: 20230601
  9. RITUXIMAB [Concomitant]
     Active Substance: RITUXIMAB
     Indication: Lupus hepatitis
  10. RITUXIMAB [Concomitant]
     Active Substance: RITUXIMAB
     Indication: Rheumatoid arthritis

REACTIONS (13)
  - Pneumonia [Unknown]
  - Sepsis [Recovered/Resolved]
  - Facial paralysis [Unknown]
  - Hypertension [Unknown]
  - Thrombosis [Unknown]
  - Therapeutic response shortened [Unknown]
  - Condition aggravated [Unknown]
  - Back pain [Recovered/Resolved]
  - Headache [Unknown]
  - Eye swelling [Unknown]
  - Non-alcoholic fatty liver [Unknown]
  - Fatigue [Unknown]
  - Infection [Unknown]

NARRATIVE: CASE EVENT DATE: 20230101
